FAERS Safety Report 5580383-X (Version None)
Quarter: 2007Q4

REPORT INFORMATION
  Report Type: 
  Country: None (occurrence: None)
  Receive Date: 20071226
  Receipt Date: 20071211
  Transmission Date: 20080405
  Serious: Yes (Other)
  Sender: FDA-Public Use
  Company Number: 2007EN000298

PATIENT
  Age: 29 Year
  Sex: Female

DRUGS (1)
  1. OPANA ER (OXYMORPONE EXTENDED RELEASE) [Suspect]
     Dosage: INH
     Route: 055
     Dates: start: 20071201

REACTIONS (4)
  - DRUG ABUSER [None]
  - HOMICIDE [None]
  - IMPRISONMENT [None]
  - INTENTIONAL DRUG MISUSE [None]
